FAERS Safety Report 19859143 (Version 1)
Quarter: 2021Q3

REPORT INFORMATION
  Report Type: Spontaneous
  Country: CA (occurrence: CA)
  Receive Date: 20210921
  Receipt Date: 20210921
  Transmission Date: 20211014
  Serious: Yes (Other)
  Sender: FDA-Public Use
  Company Number: CA-ACCORD-239196

PATIENT
  Age: 63 Year
  Sex: Female

DRUGS (4)
  1. TRAMADOL. [Interacting]
     Active Substance: TRAMADOL
     Indication: FIBROMYALGIA
     Dosage: 1 EVERY 1 DAYS
     Route: 065
  2. QUETIAPINE. [Suspect]
     Active Substance: QUETIAPINE
     Indication: FIBROMYALGIA
     Route: 048
  3. APO?LITHIUM CARBONATE [Interacting]
     Active Substance: LITHIUM CARBONATE
     Indication: BIPOLAR DISORDER
     Route: 065
  4. LITHIUM. [Concomitant]
     Active Substance: LITHIUM
     Indication: BIPOLAR II DISORDER
     Route: 065

REACTIONS (4)
  - Hypomania [Recovered/Resolved]
  - Serotonin syndrome [Recovered/Resolved]
  - Drug ineffective [Unknown]
  - Drug interaction [Unknown]
